FAERS Safety Report 17555125 (Version 3)
Quarter: 2020Q1

REPORT INFORMATION
  Report Type: Spontaneous
  Country: US (occurrence: US)
  Receive Date: 20200318
  Receipt Date: 20200324
  Transmission Date: 20200409
  Serious: No
  Sender: FDA-Public Use
  Company Number: US-GLAXOSMITHKLINE-US2020045990

PATIENT
  Age: 77 Year
  Sex: Female

DRUGS (3)
  1. BREO ELLIPTA [Suspect]
     Active Substance: FLUTICASONE FUROATE\VILANTEROL TRIFENATATE
     Indication: ASTHMA
     Dosage: 1 PUFF(S), 1D (100/25 MCG)
     Route: 055
     Dates: start: 202002
  2. BREO ELLIPTA [Suspect]
     Active Substance: FLUTICASONE FUROATE\VILANTEROL TRIFENATATE
     Dosage: UNK (200/25 MCG)
     Route: 055
     Dates: start: 20200313
  3. VENTOLIN HFA [Suspect]
     Active Substance: ALBUTEROL SULFATE
     Indication: ASTHMA
     Dosage: 2 PUFF(S) EVERY 2 HOURS
     Route: 055

REACTIONS (7)
  - Wrong technique in product usage process [Unknown]
  - Bronchial secretion retention [Unknown]
  - Dyspnoea [Unknown]
  - Wrong technique in device usage process [Unknown]
  - Drug ineffective [Unknown]
  - Prescribed overdose [Unknown]
  - Throat clearing [Unknown]

NARRATIVE: CASE EVENT DATE: 20200313
